FAERS Safety Report 7900624-0 (Version None)
Quarter: 2011Q4

REPORT INFORMATION
  Report Type: 
  Country: None (occurrence: None)
  Receive Date: 20111108
  Receipt Date: 20111031
  Transmission Date: 20120403
  Serious: Yes (Other)
  Sender: FDA-Public Use
  Company Number: AT-JNJFOC-20111101710

PATIENT

DRUGS (4)
  1. DEXAMETHASONE [Suspect]
     Indication: PLASMA CELL DISORDER
     Dosage: 1, 2, 4, 5, 8, 9, 11, 12, EVERY 28 DAYS
     Route: 065
  2. DOXORUBICIN HCL [Suspect]
     Indication: PLASMA CELL DISORDER
     Dosage: DAY 4
     Route: 042
  3. LENALIDOMIDE [Suspect]
     Indication: PLASMA CELL DISORDER
     Dosage: 15-25 MG DAY 1-21
     Route: 065
  4. BORTEZOMIB [Suspect]
     Indication: PLASMA CELL DISORDER
     Dosage: DAY 1, 4, 8, 11
     Route: 065

REACTIONS (4)
  - OFF LABEL USE [None]
  - DIARRHOEA [None]
  - BRONCHOPULMONARY ASPERGILLOSIS [None]
  - MUSCLE SPASMS [None]
